FAERS Safety Report 12165905 (Version 2)
Quarter: 2016Q1

REPORT INFORMATION
  Report Type: Spontaneous
  Country: FR (occurrence: FR)
  Receive Date: 20160309
  Receipt Date: 20160314
  Transmission Date: 20160526
  Serious: Yes (Hospitalization, Disabling, Congenital Anomaly)
  Sender: FDA-Public Use
  Company Number: FR-ABBVIE-15P-056-1486737-00

PATIENT
  Sex: Male

DRUGS (1)
  1. DEPAKINE [Suspect]
     Active Substance: VALPROATE SODIUM
     Indication: MATERNAL EXPOSURE TIMING UNSPECIFIED
     Route: 064

REACTIONS (8)
  - Hypermobility syndrome [Unknown]
  - Learning disorder [Unknown]
  - Congenital anomaly [Unknown]
  - Scoliosis [Unknown]
  - Respiratory disorder [Unknown]
  - Foetal exposure during pregnancy [Unknown]
  - Skin atrophy [Unknown]
  - Primary ciliary dyskinesia [Unknown]
